FAERS Safety Report 5495301-2 (Version None)
Quarter: 2007Q4

REPORT INFORMATION
  Report Type: 
  Country: None (occurrence: None)
  Receive Date: 20071023
  Receipt Date: 20071008
  Transmission Date: 20080405
  Serious: Yes (Hospitalization)
  Sender: FDA-Public Use
  Company Number: 2007SP003539

PATIENT
  Age: 50 Year
  Sex: Male
  Weight: 72.5755 kg

DRUGS (4)
  1. XOPENEX HFA [Suspect]
     Indication: CHRONIC OBSTRUCTIVE PULMONARY DISEASE
     Dosage: PRN; INHALATION
     Route: 055
  2. ATROVENT [Concomitant]
  3. PEPTO-BISMOL [Concomitant]
  4. IBUPROFEN [Concomitant]

REACTIONS (22)
  - ASTHMA [None]
  - BLOOD ALBUMIN DECREASED [None]
  - BLOOD PRESSURE SYSTOLIC INCREASED [None]
  - BRAIN NATRIURETIC PEPTIDE INCREASED [None]
  - BULLOUS LUNG DISEASE [None]
  - CHRONIC OBSTRUCTIVE PULMONARY DISEASE [None]
  - CONDITION AGGRAVATED [None]
  - CONSTIPATION [None]
  - DIVERTICULUM INTESTINAL [None]
  - GRAM STAIN POSITIVE [None]
  - NASAL CONGESTION [None]
  - NASAL SEPTUM DEVIATION [None]
  - NEUTROPHIL COUNT INCREASED [None]
  - NO THERAPEUTIC RESPONSE [None]
  - OSTEOARTHRITIS [None]
  - POOR DENTAL CONDITION [None]
  - PROTEIN TOTAL DECREASED [None]
  - RESPIRATORY DISTRESS [None]
  - SPINAL OSTEOARTHRITIS [None]
  - SPUTUM CULTURE POSITIVE [None]
  - TACHYCARDIA [None]
  - WHITE BLOOD CELL COUNT INCREASED [None]
